FAERS Safety Report 11220334 (Version 1)
Quarter: 2015Q2

REPORT INFORMATION
  Report Type: Spontaneous
  Country: IN (occurrence: None)
  Receive Date: 20150625
  Receipt Date: 20150625
  Transmission Date: 20150821
  Serious: Yes (Hospitalization)
  Sender: FDA-Public Use
  Company Number: None

PATIENT
  Age: 46 Year
  Sex: Female
  Weight: 56.4 kg

DRUGS (4)
  1. DAPAGLIFLOZIN 10MG FORXIGA, ASTRA ZENECA [Suspect]
     Active Substance: DAPAGLIFLOZIN
     Indication: BLOOD GLUCOSE ABNORMAL
     Dosage: 3 PILLS
     Route: 048
     Dates: start: 20150617, end: 20150620
  2. INSULIN [Concomitant]
     Active Substance: INSULIN NOS
  3. METFORMIN [Concomitant]
     Active Substance: METFORMIN HYDROCHLORIDE
  4. SULPHONYLUREA [Concomitant]

REACTIONS (3)
  - Fatigue [None]
  - Ketonuria [None]
  - Asthenia [None]

NARRATIVE: CASE EVENT DATE: 20150620
